FAERS Safety Report 24039134 (Version 1)
Quarter: 2024Q3

REPORT INFORMATION
  Report Type: Spontaneous
  Country: CN (occurrence: CN)
  Receive Date: 20240702
  Receipt Date: 20240702
  Transmission Date: 20241016
  Serious: Yes (Hospitalization)
  Sender: SHENZHEN TECHDOW PHARMACEUTICAL
  Company Number: CN-91440300279544901A-J2024HPR000382

PATIENT
  Age: 72 Year
  Sex: Male
  Weight: 51.5 kg

DRUGS (6)
  1. ENOXAPARIN SODIUM [Suspect]
     Active Substance: ENOXAPARIN SODIUM
     Indication: Peripheral arterial occlusive disease
     Dosage: 0.5ML,EVERY 12 HOURS
     Dates: start: 20240607, end: 20240614
  2. SODIUM CHLORIDE [Concomitant]
     Active Substance: SODIUM CHLORIDE
     Indication: Vehicle solution use
     Dosage: 60ML,QD
     Route: 040
     Dates: start: 20240607, end: 20240609
  3. Urokinase for Injection [Concomitant]
     Indication: Peripheral arterial occlusive disease
     Dosage: 400KU,QD
     Route: 040
     Dates: start: 20240607, end: 20240609
  4. CLOPIDOGREL BISULFATE [Concomitant]
     Active Substance: CLOPIDOGREL BISULFATE
     Indication: Peripheral arterial occlusive disease
     Dosage: 75MG,QD
     Dates: start: 20240607, end: 20240614
  5. IODIXANOL [Concomitant]
     Active Substance: IODIXANOL
     Indication: Peripheral arterial occlusive disease
     Dosage: 64G,QD
     Route: 040
     Dates: start: 20240607, end: 20240609
  6. ASPIRIN [Concomitant]
     Active Substance: ASPIRIN
     Indication: Peripheral arterial occlusive disease
     Dosage: 0.2MG,QD
     Dates: start: 20240607, end: 20240614

REACTIONS (2)
  - Haemorrhage subcutaneous [Recovering/Resolving]
  - Peripheral swelling [Recovering/Resolving]

NARRATIVE: CASE EVENT DATE: 20240610
